FAERS Safety Report 11939349 (Version 1)
Quarter: 2016Q1

REPORT INFORMATION
  Report Type: Spontaneous
  Country: US (occurrence: US)
  Receive Date: 20160122
  Receipt Date: 20160122
  Transmission Date: 20160526
  Serious: No
  Sender: FDA-Public Use
  Company Number: US-BAUSCH-BL-2015-021854

PATIENT
  Sex: Female

DRUGS (2)
  1. CLINDAGEL [Suspect]
     Active Substance: CLINDAMYCIN PHOSPHATE
     Indication: ACNE CYSTIC
     Route: 061
  2. CERAVE SA RENEWING LOTION [Suspect]
     Active Substance: HYALURONIC ACID
     Indication: ACNE CYSTIC
     Route: 061

REACTIONS (1)
  - Dry skin [Not Recovered/Not Resolved]
